FAERS Safety Report 24149896 (Version 1)
Quarter: 2024Q3

REPORT INFORMATION
  Report Type: Spontaneous
  Country: GB (occurrence: GB)
  Receive Date: 20240730
  Receipt Date: 20240730
  Transmission Date: 20241017
  Serious: Yes (Other)
  Sender: DR REDDYS
  Company Number: None

PATIENT

DRUGS (1)
  1. FINASTERIDE [Suspect]
     Active Substance: FINASTERIDE
     Indication: Product used for unknown indication

REACTIONS (6)
  - Depression [Unknown]
  - Headache [Unknown]
  - Mood swings [Unknown]
  - Erectile dysfunction [Unknown]
  - Erectile dysfunction [Unknown]
  - Anxiety [Unknown]
